FAERS Safety Report 8180887-X (Version None)
Quarter: 2012Q1

REPORT INFORMATION
  Report Type: 
  Country: None (occurrence: None)
  Receive Date: 20120302
  Receipt Date: 20120224
  Transmission Date: 20120608
  Serious: Yes (Other)
  Sender: FDA-Public Use
  Company Number: ES-PFIZER INC-2012027185

PATIENT
  Age: 17 Month
  Sex: Male
  Weight: 11 kg

DRUGS (1)
  1. MOROCTOCOG ALFA [Suspect]
     Indication: FACTOR VIII DEFICIENCY
     Dosage: 25 IU/KG, WEEKLY
     Dates: start: 20110920

REACTIONS (1)
  - FACTOR VIII INHIBITION [None]
